FAERS Safety Report 9476038 (Version 2)
Quarter: 2013Q3

REPORT INFORMATION
  Report Type: Report from Study
  Country: BR (occurrence: BR)
  Receive Date: 20130826
  Receipt Date: 20130927
  Transmission Date: 20140515
  Serious: Yes (Hospitalization, Other)
  Sender: FDA-Public Use
  Company Number: BR-NOVOPROD-385871

PATIENT
  Age: 18 Year
  Sex: Female
  Weight: 79 kg

DRUGS (3)
  1. INSULIN DETEMIR FLEXPEN [Suspect]
     Indication: TYPE 1 DIABETES MELLITUS
     Dosage: 50 IU, QD
     Route: 065
     Dates: start: 2009
  2. HERBAL PREPARATION [Concomitant]
     Indication: WEIGHT CONTROL
  3. INSULINS AND ANALOGUES FOR INJECTION, FAST-AC [Concomitant]

REACTIONS (5)
  - Incorrect dose administered [Unknown]
  - Diabetic ketoacidosis [Recovered/Resolved]
  - Diabetic neuropathy [Recovered/Resolved]
  - Weight increased [Unknown]
  - Treatment noncompliance [Unknown]
